FAERS Safety Report 4854463-8 (Version None)
Quarter: 2005Q4

REPORT INFORMATION
  Report Type: 
  Country: None (occurrence: None)
  Receive Date: 20051215
  Receipt Date: 20051017
  Transmission Date: 20060501
  Serious: Yes (Other)
  Sender: FDA-Public Use
  Company Number: PHNR2005AU01510

PATIENT
  Age: 82 Year
  Sex: Female

DRUGS (4)
  1. PAMIDRONATE DISODIUM [Suspect]
     Indication: OSTEITIS DEFORMANS
     Dosage: 90 MG, Q3MO
     Route: 042
  2. THYROXINE [Concomitant]
  3. NSAID'S [Concomitant]
  4. ALENDRONATE SODIUM [Suspect]
     Indication: OSTEITIS DEFORMANS
     Dosage: 20 MG, QD
     Route: 048

REACTIONS (6)
  - BONE DISORDER [None]
  - FISTULA [None]
  - OSTEONECROSIS [None]
  - PURULENT DISCHARGE [None]
  - TOOTH EXTRACTION [None]
  - WEIGHT DECREASED [None]
